FAERS Safety Report 18387518 (Version 2)
Quarter: 2020Q4

REPORT INFORMATION
  Report Type: Report from Study
  Country: None (occurrence: US)
  Receive Date: 20201015
  Receipt Date: 20201020
  Transmission Date: 20210114
  Serious: Yes (Death)
  Sender: FDA-Public Use
  Company Number: US-ABBVIE-20K-163-3609337-00

PATIENT
  Age: 79 Year
  Sex: Male

DRUGS (3)
  1. VENCLEXTA [Suspect]
     Active Substance: VENETOCLAX
     Indication: MYELODYSPLASTIC SYNDROME
     Dosage: TAKE ONE TABLET BY MOUTH ON DAY ONE
     Route: 048
     Dates: start: 20200929, end: 20200929
  2. VENCLEXTA [Suspect]
     Active Substance: VENETOCLAX
     Dosage: TWO TABLETS ON DAY TWO
     Route: 048
     Dates: start: 20200930, end: 20200930
  3. VENCLEXTA [Suspect]
     Active Substance: VENETOCLAX
     Dosage: THEN FOUR TABLETS BY MOUTH DAILY THEREAFTER
     Route: 048
     Dates: start: 202010, end: 202010

REACTIONS (2)
  - Off label use [Unknown]
  - Death [Fatal]

NARRATIVE: CASE EVENT DATE: 2020
